FAERS Safety Report 17488136 (Version 1)
Quarter: 2020Q1

REPORT INFORMATION
  Report Type: Spontaneous
  Country: US (occurrence: US)
  Receive Date: 20200220
  Receipt Date: 20200220
  Transmission Date: 20200409
  Serious: Yes (Hospitalization)
  Sender: FDA-Public Use
  Company Number: None

PATIENT
  Age: 59 Year
  Sex: Female

DRUGS (10)
  1. AMBRISENTAN 10MG TAB [Suspect]
     Active Substance: AMBRISENTAN
     Indication: PULMONARY HYPERTENSION
     Route: 048
     Dates: start: 20200122
  2. ADCIRCA [Concomitant]
     Active Substance: TADALAFIL
  3. METOPROLOL SUC ER [Concomitant]
  4. TADALAFIL 20MG TAB [Suspect]
     Active Substance: TADALAFIL
     Indication: PULMONARY HYPERTENSION
     Route: 048
     Dates: start: 20190415, end: 20200122
  5. JAKAFI [Concomitant]
     Active Substance: RUXOLITINIB
  6. LISINOPRIL. [Concomitant]
     Active Substance: LISINOPRIL
  7. VICTOZA [Concomitant]
     Active Substance: LIRAGLUTIDE
  8. LETAIRIS [Concomitant]
     Active Substance: AMBRISENTAN
  9. VEITASSA [Concomitant]
  10. ALLOPURINOL. [Concomitant]
     Active Substance: ALLOPURINOL

REACTIONS (1)
  - Diverticulitis [None]

NARRATIVE: CASE EVENT DATE: 20200205
